FAERS Safety Report 14554512 (Version 2)
Quarter: 2018Q2

REPORT INFORMATION
  Report Type: Report from Study
  Country: FR (occurrence: FR)
  Receive Date: 20180220
  Receipt Date: 20180515
  Transmission Date: 20180711
  Serious: Yes (Hospitalization)
  Sender: FDA-Public Use
  Company Number: FR-TEVA-2018-FR-857625

PATIENT
  Age: 72 Year
  Sex: Male
  Weight: 66 kg

DRUGS (8)
  1. FLUOROURACIL. [Suspect]
     Active Substance: FLUOROURACIL
     Route: 040
     Dates: start: 20151110
  2. XELODA [Suspect]
     Active Substance: CAPECITABINE
     Indication: COLORECTAL CANCER METASTATIC
     Dosage: LAST DATE OF ADMINISTRATION BEFORE SAE OCCURRENCE: 17-MAY-2015.
     Route: 065
     Dates: start: 20150517
  3. IRINOTECAN [Suspect]
     Active Substance: IRINOTECAN
     Indication: COLORECTAL CANCER METASTATIC
     Dosage: LAST DATE OF ADMINISTRATION BEFORE SAE: 26-JAN-2016.
     Route: 065
     Dates: start: 20151110
  4. CALCIUM LEVOFOLINATE [Suspect]
     Active Substance: LEVOLEUCOVORIN CALCIUM
     Indication: COLORECTAL CANCER METASTATIC
     Dosage: LAST DATE OF ADMINISTRATION BEFORE SAE: 03-MAY-2016.
     Route: 065
     Dates: start: 20151110
  5. AVASTIN [Suspect]
     Active Substance: BEVACIZUMAB
     Indication: COLORECTAL CANCER METASTATIC
     Dosage: LAST DATE OF ADMINISTRATION BEFORE SAE: 17-MAY-2016.
     Route: 065
     Dates: start: 20151110
  6. INSULIN [Concomitant]
     Active Substance: INSULIN NOS
     Indication: TYPE 1 DIABETES MELLITUS
     Route: 058
  7. FLUOROURACIL. [Suspect]
     Active Substance: FLUOROURACIL
     Indication: COLORECTAL CANCER METASTATIC
     Dosage: LAST DATE OF ADMINISTRATION BEFORE SAE: 03-MAY-2016.
     Route: 041
     Dates: start: 20151110
  8. IRINOTECAN [Suspect]
     Active Substance: IRINOTECAN
     Indication: OFF LABEL USE
     Route: 065

REACTIONS (8)
  - Dysgeusia [Unknown]
  - Acral peeling skin syndrome [Unknown]
  - Diarrhoea [Recovered/Resolved]
  - Off label use [Unknown]
  - Asthenia [Recovered/Resolved]
  - Palmar-plantar erythrodysaesthesia syndrome [Recovered/Resolved]
  - Ill-defined disorder [Unknown]
  - Decreased appetite [Recovered/Resolved]

NARRATIVE: CASE EVENT DATE: 20160517
